FAERS Safety Report 4552370-1 (Version None)
Quarter: 2005Q1

REPORT INFORMATION
  Report Type: 
  Country: None (occurrence: None)
  Receive Date: 20050114
  Receipt Date: 20040318
  Transmission Date: 20050727
  Serious: No
  Sender: FDA-Public Use
  Company Number: US-GLAXOSMITHKLINE-A0503458A

PATIENT
  Age: 54 Year
  Sex: Female

DRUGS (9)
  1. IMITREX [Suspect]
     Indication: MIGRAINE
     Dosage: 1INJ AS REQUIRED
     Route: 058
  2. IMITREX [Suspect]
     Dosage: 50MG AS REQUIRED
     Route: 048
  3. IMITREX [Suspect]
     Dosage: 1SPR AS REQUIRED
     Route: 045
  4. LIPITOR [Suspect]
     Route: 048
  5. NIASPAN [Suspect]
     Route: 048
  6. EYE DROP [Concomitant]
  7. ELAVIL [Concomitant]
  8. TYLENOL W/ CODEINE [Concomitant]
  9. EXCEDRIN (MIGRAINE) [Concomitant]

REACTIONS (4)
  - ARTHRALGIA [None]
  - DRUG INEFFECTIVE [None]
  - PAIN IN EXTREMITY [None]
  - PHARMACEUTICAL PRODUCT COMPLAINT [None]
